FAERS Safety Report 9451567 (Version 1)
Quarter: 2013Q3

REPORT INFORMATION
  Report Type: Spontaneous
  Country: US (occurrence: US)
  Receive Date: 20130811
  Receipt Date: 20130811
  Transmission Date: 20140515
  Serious: Yes (Hospitalization)
  Sender: FDA-Public Use
  Company Number: US-SANOFI-AVENTIS-2013SA080058

PATIENT
  Sex: Male
  Weight: 67 kg

DRUGS (5)
  1. PLAVIX [Suspect]
     Route: 048
     Dates: start: 2012
  2. CLOPIDOGREL BISULFATE [Suspect]
     Route: 065
  3. ETANERCEPT [Concomitant]
  4. PREDNISONE [Concomitant]
     Indication: ARTHRITIS
  5. ETANERCEPT [Concomitant]

REACTIONS (7)
  - Arteriosclerosis [Unknown]
  - Arthritis [Unknown]
  - Rheumatoid arthritis [Unknown]
  - Spondylitis [Unknown]
  - Sciatica [Unknown]
  - Contusion [Unknown]
  - Drug dose omission [Unknown]
